FAERS Safety Report 5450933-2 (Version None)
Quarter: 2007Q3

REPORT INFORMATION
  Report Type: 
  Country: None (occurrence: None)
  Receive Date: 20070911
  Receipt Date: 20070904
  Transmission Date: 20080115
  Serious: Yes (Hospitalization)
  Sender: FDA-Public Use
  Company Number: 163-21880-07090159

PATIENT
  Age: 65 Year
  Sex: Male

DRUGS (1)
  1. REVLIMID [Suspect]
     Indication: MULTIPLE MYELOMA
     Dosage: 15 MG, THREE TIMES PER WEEK AFTER DIALYSIS, ORAL
     Dates: start: 20070714, end: 20070801

REACTIONS (2)
  - BLOOD CALCIUM INCREASED [None]
  - PLATELET COUNT DECREASED [None]
